FAERS Safety Report 17374711 (Version 1)
Quarter: 2020Q1

REPORT INFORMATION
  Report Type: Spontaneous
  Country: FR (occurrence: FR)
  Receive Date: 20200206
  Receipt Date: 20200206
  Transmission Date: 20200409
  Serious: Yes (Other)
  Sender: FDA-Public Use
  Company Number: FR-TEVA-2020-FR-1181557

PATIENT
  Age: 51 Year
  Sex: Male

DRUGS (1)
  1. LOPERAMIDE (CHLORHYDRATE DE) [Suspect]
     Active Substance: LOPERAMIDE
     Indication: PRODUCT USED FOR UNKNOWN INDICATION
     Dosage: UNKNOWN
     Route: 048

REACTIONS (1)
  - Dependence [Not Recovered/Not Resolved]

NARRATIVE: CASE EVENT DATE: 2019
